FAERS Safety Report 5164112-X (Version None)
Quarter: 2006Q4

REPORT INFORMATION
  Report Type: 
  Country: None (occurrence: None)
  Receive Date: 20061124
  Receipt Date: 20061109
  Transmission Date: 20070319
  Serious: Yes (Death)
  Sender: FDA-Public Use
  Company Number: 2006138413

PATIENT
  Age: 98 Year
  Sex: 0

DRUGS (3)
  1. AMLODIPINE [Suspect]
     Dosage: ORAL
     Route: 048
     Dates: end: 20050101
  2. DULOXETINE HYDROCHLORIDE (DULOXETINE HYDROCHLORIDE) [Suspect]
     Dosage: ORAL
     Route: 048
     Dates: end: 20050101
  3. LEVOTHYROXINE SODIUM [Suspect]
     Dosage: ORAL
     Route: 048
     Dates: end: 20050101

REACTIONS (2)
  - COMPLETED SUICIDE [None]
  - DRUG TOXICITY [None]
